FAERS Safety Report 4824089-0 (Version None)
Quarter: 2005Q4

REPORT INFORMATION
  Report Type: 
  Country: None (occurrence: None)
  Receive Date: 20051108
  Receipt Date: 20051027
  Transmission Date: 20060501
  Serious: Yes (Hospitalization)
  Sender: FDA-Public Use
  Company Number: PERC20050048

PATIENT
  Age: 51 Year
  Sex: Male

DRUGS (8)
  1. PERCOCET [Suspect]
     Indication: PROCEDURAL PAIN
     Dosage: PO
     Route: 048
     Dates: start: 20050414, end: 20050419
  2. INFLIXIMAB, RECOMBINANT [Concomitant]
  3. MORPHINE [Concomitant]
  4. MEPERIDINE HCL [Concomitant]
  5. CYMBALTA [Concomitant]
  6. LOVENOX [Concomitant]
  7. VALIUM [Concomitant]
  8. PREDNISONE [Concomitant]

REACTIONS (4)
  - CHEST PAIN [None]
  - ELECTROCARDIOGRAM ST-T CHANGE [None]
  - HYPERHIDROSIS [None]
  - NAUSEA [None]
